FAERS Safety Report 17332731 (Version 2)
Quarter: 2020Q1

REPORT INFORMATION
  Report Type: Other
  Country: AT (occurrence: AT)
  Receive Date: 20200128
  Receipt Date: 20200129
  Transmission Date: 20200409
  Serious: Yes (Life-Threatening, Other)
  Sender: FDA-Public Use
  Company Number: AT-CELLTRION INC.-2020AT018336

PATIENT

DRUGS (16)
  1. REVOLADE [Interacting]
     Active Substance: ELTROMBOPAG
     Indication: IMMUNE THROMBOCYTOPENIC PURPURA
     Dosage: 50 MG, QD
     Route: 065
     Dates: start: 201501
  2. REVOLADE [Interacting]
     Active Substance: ELTROMBOPAG
     Dosage: 50 MG, QD
     Route: 065
     Dates: start: 201901
  3. REVOLADE [Interacting]
     Active Substance: ELTROMBOPAG
     Dosage: UNK
     Route: 065
     Dates: start: 201908
  4. REVOLADE [Interacting]
     Active Substance: ELTROMBOPAG
     Dosage: 25 MG, QD
     Route: 065
  5. IRON [Interacting]
     Active Substance: IRON
     Indication: IRON DEFICIENCY
     Dosage: UNK
     Route: 065
  6. PREDNISOLONE. [Interacting]
     Active Substance: PREDNISOLONE
     Dosage: UNK
     Route: 065
     Dates: start: 201901
  7. REVOLADE [Interacting]
     Active Substance: ELTROMBOPAG
     Dosage: 25 MG, QD
     Route: 065
     Dates: start: 201505
  8. REVOLADE [Interacting]
     Active Substance: ELTROMBOPAG
     Dosage: 50 MG, QD
     Route: 065
  9. PREDNISOLONE. [Interacting]
     Active Substance: PREDNISOLONE
     Indication: IMMUNE THROMBOCYTOPENIC PURPURA
     Dosage: UNK (INTRAVENOUS ANTIBODY THERAPY (6 CYCLES) IN COMBINATION WITH PREDNISOLONE)
     Route: 065
     Dates: start: 201812
  10. CORTISONE [Interacting]
     Active Substance: CORTISONE
     Dosage: 05 MG, QOD
     Route: 065
     Dates: start: 201908
  11. REVOLADE [Interacting]
     Active Substance: ELTROMBOPAG
     Dosage: 75 MG, QD
     Route: 065
     Dates: start: 201902
  12. RITUXIMAB (UNKNOWN) [Suspect]
     Active Substance: RITUXIMAB
     Indication: IMMUNE THROMBOCYTOPENIC PURPURA
     Dosage: UNK
     Route: 065
     Dates: start: 201901
  13. REVOLADE [Interacting]
     Active Substance: ELTROMBOPAG
     Dosage: 75 MG, QD (75MG/75MG ALTERNATING)
     Route: 065
     Dates: start: 201804
  14. REVOLADE [Interacting]
     Active Substance: ELTROMBOPAG
     Dosage: 75 MG, QD
     Route: 065
     Dates: start: 201805
  15. REVOLADE [Interacting]
     Active Substance: ELTROMBOPAG
     Dosage: 50 MG, QD
     Route: 065
  16. CORTISONE [Interacting]
     Active Substance: CORTISONE
     Indication: IMMUNE THROMBOCYTOPENIC PURPURA
     Dosage: UNK
     Route: 065
     Dates: start: 2015

REACTIONS (6)
  - Iron deficiency [Unknown]
  - Thrombocytopenia [Unknown]
  - Product use in unapproved indication [Unknown]
  - Drug interaction [Unknown]
  - Remission not achieved [Unknown]
  - Immune thrombocytopenic purpura [Unknown]

NARRATIVE: CASE EVENT DATE: 201804
